FAERS Safety Report 22001080 (Version 1)
Quarter: 2023Q1

REPORT INFORMATION
  Report Type: Spontaneous
  Country: US (occurrence: US)
  Receive Date: 20230216
  Receipt Date: 20230216
  Transmission Date: 20230417
  Serious: No
  Sender: FDA-Public Use
  Company Number: US-PFIZER INC-PV202300026769

PATIENT
  Age: 67 Year
  Sex: Female

DRUGS (1)
  1. RIMEGEPANT [Suspect]
     Active Substance: RIMEGEPANT
     Dosage: 1 DF (1 DOSE)

REACTIONS (2)
  - Rash macular [Unknown]
  - Nausea [Unknown]
